FAERS Safety Report 6620178-9 (Version None)
Quarter: 2010Q1

REPORT INFORMATION
  Report Type: 
  Country: None (occurrence: None)
  Receive Date: 20100309
  Receipt Date: 20100302
  Transmission Date: 20100710
  Serious: Yes (Hospitalization, Disabling, Other)
  Sender: FDA-Public Use
  Company Number: US-SANOFI-AVENTIS-A03200803262

PATIENT
  Age: 52 Year
  Sex: Female
  Weight: 81.65 kg

DRUGS (5)
  1. AMBIEN CR [Suspect]
     Dosage: DOSE TEXT: HAD ONLY TAKEN TABLETS 4 TIMES BEFORE THE ACCIDENTUNIT DOSE: 6.25 MG
     Route: 048
     Dates: start: 20070413
  2. LEXAPRO [Concomitant]
     Route: 065
  3. ROBAXIN [Concomitant]
     Route: 065
  4. DIPHENHYDRAMINE/PARACETAMOL [Concomitant]
     Route: 065
  5. ATIVAN [Concomitant]
     Indication: NERVOUSNESS

REACTIONS (13)
  - ALTERED STATE OF CONSCIOUSNESS [None]
  - BACK PAIN [None]
  - DYSPNOEA [None]
  - FALL [None]
  - HAEMOGLOBIN DECREASED [None]
  - HYPOAESTHESIA [None]
  - NEURALGIA [None]
  - NEUROGENIC BLADDER [None]
  - PARAPLEGIA [None]
  - SOMNAMBULISM [None]
  - SPINAL FRACTURE [None]
  - TRAUMATIC LUNG INJURY [None]
  - URINARY RETENTION [None]
